FAERS Safety Report 14104870 (Version 4)
Quarter: 2018Q1

REPORT INFORMATION
  Report Type: Spontaneous
  Country: FR (occurrence: FR)
  Receive Date: 20171018
  Receipt Date: 20180102
  Transmission Date: 20180508
  Serious: Yes (Hospitalization)
  Sender: FDA-Public Use
  Company Number: FR-JNJFOC-20171013122

PATIENT
  Age: 34 Year
  Sex: Male
  Weight: 79 kg

DRUGS (3)
  1. LOXAPAC [Concomitant]
     Active Substance: LOXAPINE
     Indication: PRODUCT USED FOR UNKNOWN INDICATION
     Route: 065
  2. XEPLION [Suspect]
     Active Substance: PALIPERIDONE PALMITATE
     Indication: SCHIZOPHRENIA
     Dosage: IN THE RIGHT DELTOID
     Route: 030
     Dates: start: 20171001, end: 20171001
  3. XEPLION [Suspect]
     Active Substance: PALIPERIDONE PALMITATE
     Indication: SCHIZOPHRENIA
     Dosage: IN THE LEFT DELTOID
     Route: 030
     Dates: start: 20171008

REACTIONS (5)
  - Confusional state [Recovering/Resolving]
  - Agitation [Recovering/Resolving]
  - General physical health deterioration [Unknown]
  - Paranoia [Unknown]
  - Dissociation [Recovering/Resolving]

NARRATIVE: CASE EVENT DATE: 20171007
